FAERS Safety Report 11108896 (Version 1)
Quarter: 2015Q2

REPORT INFORMATION
  Report Type: Spontaneous
  Country: US (occurrence: None)
  Receive Date: 20150511
  Receipt Date: 20150511
  Transmission Date: 20150821
  Serious: Yes (Hospitalization, Other)
  Sender: FDA-Public Use
  Company Number: DEP_02731_2015

PATIENT
  Age: 66 Year
  Sex: Female

DRUGS (2)
  1. UNKNOWN MEDICATION [Suspect]
     Active Substance: UNSPECIFIED INGREDIENT
     Indication: SUICIDE ATTEMPT
     Dosage: DF, A HANDFUL
     Dates: start: 20141128
  2. NUCYNTA [Suspect]
     Active Substance: TAPENTADOL HYDROCHLORIDE
     Indication: SUICIDE ATTEMPT
     Route: 048
     Dates: start: 20141128

REACTIONS (4)
  - Suicide attempt [None]
  - Lethargy [None]
  - Intentional overdose [None]
  - Mental impairment [None]

NARRATIVE: CASE EVENT DATE: 20141128
